FAERS Safety Report 6391619-X (Version None)
Quarter: 2009Q4

REPORT INFORMATION
  Report Type: 
  Country: None (occurrence: None)
  Receive Date: 20091007
  Receipt Date: 20090831
  Transmission Date: 20100525
  Serious: No
  Sender: FDA-Public Use
  Company Number: A0795895A

PATIENT
  Age: 70 Year
  Sex: Female
  Weight: 63.6 kg

DRUGS (6)
  1. ADVAIR DISKUS 100/50 [Suspect]
     Indication: ASTHMA
     Dosage: 2PUFF TWICE PER DAY
     Route: 055
     Dates: start: 20090702, end: 20090706
  2. VERAMYST [Suspect]
     Dosage: 1SPR PER DAY
     Route: 045
     Dates: start: 20090702, end: 20090706
  3. ALLEGRA [Concomitant]
  4. INDERAL [Concomitant]
  5. MULTI-VITAMIN [Concomitant]
  6. CALCIUM [Concomitant]

REACTIONS (4)
  - DYSPHONIA [None]
  - ERYTHEMA [None]
  - INSOMNIA [None]
  - OEDEMA PERIPHERAL [None]
